FAERS Safety Report 5168934-0 (Version None)
Quarter: 2006Q4

REPORT INFORMATION
  Report Type: 
  Country: None (occurrence: None)
  Receive Date: 20061211
  Receipt Date: 20050805
  Transmission Date: 20070319
  Serious: Yes (Other)
  Sender: FDA-Public Use
  Company Number: JP-AVENTIS-200512286JP

PATIENT
  Age: 55 Year
  Sex: Male

DRUGS (2)
  1. AMARYL [Suspect]
     Indication: DIABETES MELLITUS
     Route: 048
     Dates: start: 20020101
  2. IRON PREPARATION [Concomitant]

REACTIONS (2)
  - HYPERTHYROIDISM [None]
  - IRON DEFICIENCY ANAEMIA [None]
